FAERS Safety Report 9920021 (Version 1)
Quarter: 2014Q1

REPORT INFORMATION
  Report Type: Spontaneous
  Country: JP (occurrence: JP)
  Receive Date: 20140224
  Receipt Date: 20140224
  Transmission Date: 20141002
  Serious: Yes (Hospitalization, Other)
  Sender: FDA-Public Use
  Company Number: JP-WATSON-2014-02745

PATIENT
  Age: 43 Year
  Sex: Female

DRUGS (7)
  1. MYCOPHENOLATE MOFETIL (UNKNOWN) [Suspect]
     Indication: LUNG TRANSPLANT
     Dosage: 1500 MG, DAILY
     Route: 065
  2. TACROLIMUS (UNKNOWN) [Suspect]
     Indication: LUNG TRANSPLANT
     Dosage: UNK
     Route: 065
  3. PREDNISOLONE (UNKNOWN) [Suspect]
     Indication: LUNG TRANSPLANT
     Dosage: 0.2 MG/KG, DAILY
     Route: 065
  4. PREDNISOLONE (UNKNOWN) [Suspect]
     Dosage: 0.4 MG/KG, DAILY
     Route: 065
  5. ITRACONAZOLE [Concomitant]
     Indication: INFECTION PROPHYLAXIS
     Dosage: 100 MG, DAILY
     Route: 048
  6. VALGANCICLOVIR [Concomitant]
     Indication: INFECTION PROPHYLAXIS
     Dosage: 900 MG, DAILY
     Route: 048
  7. TRIMETHOPRIM SULFAMETHOXAZOLE [Concomitant]
     Indication: INFECTION PROPHYLAXIS
     Dosage: 1 G, QOD
     Route: 048

REACTIONS (1)
  - Bronchopulmonary aspergillosis [Recovered/Resolved]
